FAERS Safety Report 4268875-7 (Version None)
Quarter: 2004Q1

REPORT INFORMATION
  Report Type: 
  Country: None (occurrence: None)
  Receive Date: 20040109
  Receipt Date: 20031230
  Transmission Date: 20041129
  Serious: Yes (Hospitalization, Disabling)
  Sender: FDA-Public Use
  Company Number: 200400088

PATIENT
  Age: 39 Year
  Sex: Female
  Weight: 46.7205 kg

DRUGS (8)
  1. IBUPROFEN [Suspect]
     Indication: FIBROMYALGIA
     Dosage: 1200 TO 2400 MG PO
     Route: 048
     Dates: start: 19930101, end: 19980301
  2. LEVOXYL [Concomitant]
  3. ATENOLOL [Concomitant]
  4. TR-NORINYL (ETHINYL ESTRADIOL/NORETHINDRONE) [Concomitant]
  5. TRAZODONE HCL [Concomitant]
  6. TYLENOL WITH CODEINE NO 3 (ACETAMINOPHEN/CODEINE) [Concomitant]
  7. DARVOCET-N 100 (ACETAMINOPHEN/PROPOXYPHENE) [Concomitant]
  8. PSEUDOEPHEDRINE HCL [Concomitant]

REACTIONS (14)
  - ACQUIRED PYLORIC STENOSIS [None]
  - DYSPEPSIA [None]
  - GASTRIC OUTLET OBSTRUCTION [None]
  - GASTRIC ULCER [None]
  - GASTROINTESTINAL PERFORATION [None]
  - IATROGENIC INJURY [None]
  - IMPAIRED GASTRIC EMPTYING [None]
  - IMPAIRED WORK ABILITY [None]
  - INTESTINAL OBSTRUCTION [None]
  - NAUSEA [None]
  - POST GASTRIC SURGERY SYNDROME [None]
  - PROCEDURAL COMPLICATION [None]
  - VOMITING [None]
  - WEIGHT DECREASED [None]
